FAERS Safety Report 14603827 (Version 1)
Quarter: 2018Q1

REPORT INFORMATION
  Report Type: Spontaneous
  Country: US (occurrence: US)
  Receive Date: 20180305
  Receipt Date: 20180305
  Transmission Date: 20180509
  Serious: Yes (Hospitalization)
  Sender: FDA-Public Use
  Company Number: None

PATIENT
  Age: 65 Year
  Sex: Female

DRUGS (19)
  1. JADENU [Suspect]
     Active Substance: DEFERASIROX
     Indication: HAEMOCHROMATOSIS
     Route: 048
     Dates: start: 20170926
  2. LEVEMIR [Concomitant]
     Active Substance: INSULIN DETEMIR
  3. VITAMIN D [Concomitant]
     Active Substance: CHOLECALCIFEROL
  4. BISOPROL FUM [Concomitant]
     Active Substance: BISOPROLOL FUMARATE
  5. LEVETIRACETA [Concomitant]
  6. ALLOPURINOL. [Concomitant]
     Active Substance: ALLOPURINOL
  7. ENOXAPARIN [Concomitant]
     Active Substance: ENOXAPARIN
  8. PHENYTOIN. [Concomitant]
     Active Substance: PHENYTOIN
  9. COLCRYS [Concomitant]
     Active Substance: COLCHICINE
  10. CHLORTHALID [Concomitant]
  11. LANTUS [Concomitant]
     Active Substance: INSULIN GLARGINE
  12. HYDROXYUREA. [Concomitant]
     Active Substance: HYDROXYUREA
  13. FERROUS SULF [Concomitant]
     Active Substance: FERROUS SULFATE
  14. FLUTICASONE. [Concomitant]
     Active Substance: FLUTICASONE
  15. TRAMADOL. [Concomitant]
     Active Substance: TRAMADOL
  16. NOVOLOG [Concomitant]
     Active Substance: INSULIN ASPART
  17. AMLODIPINE [Concomitant]
     Active Substance: AMLODIPINE BESYLATE
  18. ATORVASTATIN [Concomitant]
     Active Substance: ATORVASTATIN
  19. LISINOPRIL. [Concomitant]
     Active Substance: LISINOPRIL

REACTIONS (1)
  - Hospitalisation [None]

NARRATIVE: CASE EVENT DATE: 20180202
